FAERS Safety Report 18622625 (Version 2)
Quarter: 2021Q1

REPORT INFORMATION
  Report Type: Spontaneous
  Country: SE (occurrence: SE)
  Receive Date: 20201216
  Receipt Date: 20210302
  Transmission Date: 20210419
  Serious: Yes (Death)
  Sender: FDA-Public Use
  Company Number: SE-TEVA-2020-SE-1857989

PATIENT
  Age: 65 Year
  Sex: Male

DRUGS (18)
  1. METFORMIN [Concomitant]
     Active Substance: METFORMIN HYDROCHLORIDE
     Dosage: UNIT DOSE : 2550 MG
     Dates: start: 20170907
  2. TROMBYL 75 MG TABLETT [Concomitant]
     Active Substance: ASPIRIN
     Dosage: UNIT DOSE : 75 MG
     Dates: start: 20170908
  3. BRICANYL TURBUHALER 0,5 MG/DOS INHALATIONSPULVER [Concomitant]
     Dosage: 1 INHALATION IF NECESSARY
     Dates: start: 20190206
  4. MINIDERM 20 % KRAM [Concomitant]
     Dates: start: 20170907
  5. ATORVASTATIN [Concomitant]
     Active Substance: ATORVASTATIN
     Dosage: UNIT DOSE : 20 MG
     Dates: start: 20180721
  6. RAMIPRIL. [Concomitant]
     Active Substance: RAMIPRIL
     Dosage: UNIT DOSE :  10 MG
     Dates: start: 20170908
  7. OMEPRAZOLE. [Concomitant]
     Active Substance: OMEPRAZOLE
     Dosage: UNIT DOSE :  40 MG
     Dates: start: 20170908
  8. OXALIPLATIN. [Suspect]
     Active Substance: OXALIPLATIN
     Indication: ADJUVANT THERAPY
     Dosage: AG 1 / VAR 3RD V 235 MG CURE 1, 8 SEPTEMBER CURE 2, 29 SEPTEMBER , UNIT DOSE : 235 MG
     Route: 042
     Dates: start: 20200908, end: 20200929
  9. BETNOVAT 0,1 % KRAM [Concomitant]
     Dates: start: 20170929
  10. BETNOVAT 1 MG/ML KUTAN EMULSION [Concomitant]
     Dates: start: 20171129
  11. MINDIAB 5 MG TABLETT [Concomitant]
     Dosage: UNIT DOSE :  10 MG
     Dates: start: 20170908
  12. CAPECITABINE. [Suspect]
     Active Substance: CAPECITABINE
     Indication: ADJUVANT THERAPY
     Dosage: DAY 1?15 / EVERY 3 WEEKS DOSAGE 1800 MG X 2
     Route: 048
     Dates: start: 20200908, end: 20201010
  13. BUFOMIX EASYHALER 160 MIKROGRAM/4,5 MIKROGRAM/INHALATION INHALATIONSPU [Concomitant]
     Dosage: 4 DOSAGE FORMS DAILY; INHALATIONS
     Dates: start: 20190206
  14. HYDROCHLOROTHIAZIDE. [Concomitant]
     Active Substance: HYDROCHLOROTHIAZIDE
     Dosage: UNIT DOSE : 25 MG
     Dates: start: 20170908
  15. JANUVIA 100 MG FILMDRAGERAD TABLETT [Concomitant]
     Dosage: UNIT DOSE :  100 MG
     Dates: start: 20170908
  16. ALVEDON 500 MG FILMDRAGERAD TABLETT [Concomitant]
     Active Substance: ACETAMINOPHEN
     Dosage: 2 TABLETS IF NEEDED 3 TIMES DAILY
     Dates: start: 20200812
  17. INOLAXOL [Concomitant]
     Active Substance: HERBALS\KARAYA GUM
     Dates: start: 20200924
  18. LORATADINE. [Concomitant]
     Active Substance: LORATADINE
     Dosage: 1 TABLET IF NEEDED
     Dates: start: 20170907

REACTIONS (6)
  - Small intestinal haemorrhage [Fatal]
  - Gastrointestinal mucosal necrosis [Fatal]
  - Gastrointestinal oedema [Fatal]
  - Thrombocytopenia [Fatal]
  - Septic shock [Fatal]
  - Febrile neutropenia [Fatal]

NARRATIVE: CASE EVENT DATE: 202010
